FAERS Safety Report 10649400 (Version 1)
Quarter: 2014Q4

REPORT INFORMATION
  Report Type: Spontaneous
  Country: US (occurrence: US)
  Receive Date: 20141212
  Receipt Date: 20141212
  Transmission Date: 20150529
  Serious: Yes (Death, Other)
  Sender: FDA-Public Use
  Company Number: US-AMGEN-USASP2014096680

PATIENT
  Age: 62 Year
  Sex: Male

DRUGS (3)
  1. KYPROLIS [Suspect]
     Active Substance: CARFILZOMIB
     Indication: PLASMA CELL MYELOMA
     Dosage: 20 MG/M2, Q4WK
     Route: 042
  2. DEXAMETHASONE. [Concomitant]
     Active Substance: DEXAMETHASONE
     Dosage: 20 MG, QWK
  3. THALIDOMIDE [Concomitant]
     Active Substance: THALIDOMIDE
     Dosage: 100 UNK, UNK

REACTIONS (6)
  - Glomerulonephropathy [Recovering/Resolving]
  - Hypertension [Recovering/Resolving]
  - Thrombotic microangiopathy [Recovering/Resolving]
  - Proteinuria [Recovering/Resolving]
  - Plasma cell myeloma [Fatal]
  - Oedema peripheral [Recovering/Resolving]
